FAERS Safety Report 7423547-2 (Version None)
Quarter: 2011Q2

REPORT INFORMATION
  Report Type: 
  Country: None (occurrence: None)
  Receive Date: 20110419
  Receipt Date: 20110403
  Transmission Date: 20111010
  Serious: Yes (Life-Threatening, Hospitalization, Other)
  Sender: FDA-Public Use
  Company Number: US-BAYER-201039675NA

PATIENT
  Age: 15 Year
  Sex: Female
  Weight: 65.306 kg

DRUGS (14)
  1. EFFEXOR [Concomitant]
  2. SINGULAIR [Concomitant]
  3. FOLIC ACID [Concomitant]
  4. VICODIN [Concomitant]
     Dosage: UNK UNK, PRN
  5. ADVIL LIQUI-GELS [Concomitant]
  6. ZANTAC [Concomitant]
  7. ASPIRIN [Concomitant]
  8. ZYRTEC [Concomitant]
  9. XYZAL [Concomitant]
  10. MYLANTA-II [Concomitant]
  11. ATARAX [Concomitant]
  12. YAZ [Suspect]
     Indication: ACNE
     Dosage: 1 DF, QD
     Route: 048
     Dates: start: 20060601, end: 20090901
  13. BENADRYL [Concomitant]
  14. GAS-X [Concomitant]

REACTIONS (8)
  - THROMBOSIS [None]
  - ANXIETY [None]
  - PULMONARY EMBOLISM [None]
  - PAIN [None]
  - GENERAL PHYSICAL HEALTH DETERIORATION [None]
  - TRAUMATIC LUNG INJURY [None]
  - FATIGUE [None]
  - ASTHENIA [None]
